FAERS Safety Report 7025632-6 (Version None)
Quarter: 2010Q4

REPORT INFORMATION
  Report Type: 
  Country: None (occurrence: None)
  Receive Date: 20101004
  Receipt Date: 20100921
  Transmission Date: 20110411
  Serious: Yes (Other)
  Sender: FDA-Public Use
  Company Number: US-RANBAXY-2010US-38292

PATIENT

DRUGS (3)
  1. ISOTRETINOIN [Suspect]
     Indication: PRODUCT USED FOR UNKNOWN INDICATION
     Dosage: 40 MG, BID
     Route: 065
     Dates: start: 20061207
  2. ISOTRETINOIN [Suspect]
     Dosage: 40 MG, BID
     Route: 065
     Dates: start: 20070216, end: 20070101
  3. ISOTRETINOIN [Suspect]
     Dosage: 40 MG, BID
     Route: 065
     Dates: start: 20080319, end: 20080101

REACTIONS (1)
  - PREGNANCY [None]
